FAERS Safety Report 10085922 (Version 1)
Quarter: 2014Q2

REPORT INFORMATION
  Report Type: Spontaneous
  Country: US (occurrence: US)
  Receive Date: 20140418
  Receipt Date: 20140418
  Transmission Date: 20141212
  Serious: No
  Sender: FDA-Public Use
  Company Number: US-BAYER-2014-052683

PATIENT
  Age: 17 Year
  Sex: Female

DRUGS (2)
  1. ALEVE CAPLET [Suspect]
     Indication: MIGRAINE
     Dosage: UNK
  2. MIDOL EXTENDED RELIEF CAPLET [Suspect]
     Indication: MIGRAINE

REACTIONS (2)
  - Intentional product misuse [None]
  - Intentional product misuse [None]
